FAERS Safety Report 7293290-1 (Version None)
Quarter: 2011Q1

REPORT INFORMATION
  Report Type: 
  Country: None (occurrence: None)
  Receive Date: 20110210
  Receipt Date: 20110210
  Transmission Date: 20110831
  Serious: Yes (Hospitalization)
  Sender: FDA-Public Use
  Company Number: None

PATIENT
  Age: 44 Year
  Sex: Male
  Weight: 87 kg

DRUGS (2)
  1. BLEOMYCIN SULFATE [Suspect]
     Dosage: 30 UNITS QWEEK IV
     Route: 042
     Dates: start: 20100614, end: 20100714
  2. ETOPOSIDE [Suspect]
     Dosage: 119 MG EVERY DAY IV
     Route: 042
     Dates: start: 20100614, end: 20100618

REACTIONS (1)
  - FEBRILE NEUTROPENIA [None]
